FAERS Safety Report 7390071-5 (Version None)
Quarter: 2011Q2

REPORT INFORMATION
  Report Type: 
  Country: None (occurrence: None)
  Receive Date: 20110401
  Receipt Date: 20110322
  Transmission Date: 20111010
  Serious: Yes (Other)
  Sender: FDA-Public Use
  Company Number: US-ASTRAZENECA-2011SE16071

PATIENT
  Age: 61 Year
  Sex: Male
  Weight: 87.1 kg

DRUGS (8)
  1. PRAVASTATIN [Concomitant]
  2. TOPROL-XL [Suspect]
     Dosage: 25MG
     Route: 048
  3. LOTREL [Concomitant]
  4. TOPROL-XL [Suspect]
     Indication: HYPERTENSION
     Route: 048
  5. TOPROL-XL [Suspect]
     Route: 048
  6. BUSPIRONE HCL [Concomitant]
  7. TOPROL-XL [Suspect]
     Route: 048
  8. DOXAZOSIN [Concomitant]

REACTIONS (3)
  - HEART RATE DECREASED [None]
  - PALPITATIONS [None]
  - BUNDLE BRANCH BLOCK [None]
